FAERS Safety Report 7463189-6 (Version None)
Quarter: 2011Q2

REPORT INFORMATION
  Report Type: 
  Country: None (occurrence: None)
  Receive Date: 20110506
  Receipt Date: 20110428
  Transmission Date: 20111010
  Serious: Yes (Hospitalization)
  Sender: FDA-Public Use
  Company Number: AU-ROCHE-753886

PATIENT
  Sex: Male
  Weight: 82.5 kg

DRUGS (6)
  1. GRANISETRON HCL [Suspect]
     Dosage: FREQUENCY: 1 TIME
     Route: 065
     Dates: start: 20101203, end: 20101203
  2. FLUOROURACIL [Suspect]
     Dosage: FREQUENCY: DAILY
     Route: 042
     Dates: start: 20101203, end: 20101203
  3. APREPITANT [Concomitant]
     Route: 048
     Dates: start: 20101204
  4. DOCETAXEL [Suspect]
     Dosage: FREQUENCY: 1 TIME
     Route: 042
     Dates: start: 20101203, end: 20101203
  5. CISPLATIN [Suspect]
     Dosage: FREQUENCY: 1 TIME
     Route: 042
     Dates: start: 20101203, end: 20101203
  6. CIPROFLOXACIN [Concomitant]
     Route: 048
     Dates: start: 20101207

REACTIONS (4)
  - RASH [None]
  - PRESYNCOPE [None]
  - FEBRILE NEUTROPENIA [None]
  - HYPERSENSITIVITY [None]
